FAERS Safety Report 15975600 (Version 1)
Quarter: 2019Q1

REPORT INFORMATION
  Report Type: Spontaneous
  Country: US (occurrence: US)
  Receive Date: 20190218
  Receipt Date: 20190218
  Transmission Date: 20190418
  Serious: Yes (Other)
  Sender: FDA-Public Use
  Company Number: US-COOPERSURGICAL, INC.-US-2019CPS000321

PATIENT

DRUGS (1)
  1. PARAGARD T 380A [Suspect]
     Active Substance: COPPER
     Indication: CONTRACEPTION
     Dosage: UNK
     Route: 015
     Dates: start: 20130501, end: 201808

REACTIONS (10)
  - Device material issue [Recovered/Resolved]
  - Device breakage [Recovered/Resolved]
  - Uterine pain [Recovered/Resolved]
  - Menorrhagia [Recovered/Resolved]
  - Foreign body in reproductive tract [Recovered/Resolved]
  - Nonspecific reaction [Recovered/Resolved]
  - Complication of device removal [Recovered/Resolved]
  - Feeling abnormal [Recovered/Resolved]
  - Inflammation [Recovered/Resolved]
  - Device use error [Recovered/Resolved]

NARRATIVE: CASE EVENT DATE: 2014
